FAERS Safety Report 17347663 (Version 2)
Quarter: 2020Q1

REPORT INFORMATION
  Report Type: Spontaneous
  Country: RO (occurrence: RO)
  Receive Date: 20200130
  Receipt Date: 20200306
  Transmission Date: 20200409
  Serious: Yes (Other)
  Sender: FDA-Public Use
  Company Number: RO-PFIZER INC-2020037366

PATIENT
  Age: 57 Year
  Sex: Male
  Weight: 76 kg

DRUGS (4)
  1. SUTENT [Suspect]
     Active Substance: SUNITINIB MALATE
     Indication: RENAL NEOPLASM
     Dosage: 50 MG, UNK
     Dates: start: 20180521
  2. ATORIS [Concomitant]
     Active Substance: ATORVASTATIN CALCIUM
     Dosage: UNK
  3. SODIUM BICARBONATE. [Concomitant]
     Active Substance: SODIUM BICARBONATE
     Dosage: UNK
  4. FUROSEMID [Concomitant]
     Active Substance: FUROSEMIDE
     Dosage: UNK MG, UNK

REACTIONS (9)
  - Peripheral coldness [Unknown]
  - Pericarditis [Unknown]
  - Ascites [Unknown]
  - Fatigue [Unknown]
  - Anaemia [Unknown]
  - Cholelithiasis [Unknown]
  - Dizziness [Unknown]
  - Somnolence [Unknown]
  - Pleurisy [Unknown]

NARRATIVE: CASE EVENT DATE: 20200116
